FAERS Safety Report 7248081-4 (Version None)
Quarter: 2011Q1

REPORT INFORMATION
  Report Type: 
  Country: None (occurrence: None)
  Receive Date: 20110127
  Receipt Date: 20100504
  Transmission Date: 20110831
  Serious: Yes (Other)
  Sender: FDA-Public Use
  Company Number: US-MYLANLABS-2010S1007992

PATIENT
  Age: 35 Year
  Sex: Female

DRUGS (6)
  1. CLONIDINE [Concomitant]
     Route: 048
     Dates: start: 20090101
  2. ENALAP/HYDROCH [Concomitant]
     Route: 048
     Dates: start: 20090101
  3. PHENYTOIN SODIUM CAP [Suspect]
     Indication: CONVULSION
     Route: 048
     Dates: start: 20090101
  4. LIPITOR [Concomitant]
     Route: 048
     Dates: start: 20090101
  5. ALBUTEROL [Concomitant]
     Route: 055
     Dates: start: 20090101
  6. KEPPRA [Concomitant]
     Indication: CONVULSION
     Route: 048
     Dates: start: 20090101

REACTIONS (2)
  - DRUG EFFECT DECREASED [None]
  - CONVULSION [None]
